FAERS Safety Report 4886223-6 (Version None)
Quarter: 2006Q1

REPORT INFORMATION
  Report Type: 
  Country: None (occurrence: None)
  Receive Date: 20060118
  Receipt Date: 20051230
  Transmission Date: 20060701
  Serious: Yes (Other)
  Sender: FDA-Public Use
  Company Number: 219757

PATIENT
  Age: 20 Year
  Sex: Female
  Weight: 50.8 kg

DRUGS (2)
  1. RITUXIMAB OR PLACEBO (CODE NOT BROKEN) CONC FOR SOLUTION FOR INFUSION [Suspect]
     Indication: MULTIPLE SCLEROSIS
     Dosage: 1000 MG, INTRAVENOUS
     Route: 042
     Dates: start: 20040707, end: 20050706
  2. TOPAMAX [Concomitant]

REACTIONS (4)
  - DRUG EXPOSURE BEFORE PREGNANCY [None]
  - INTRA-UTERINE DEATH [None]
  - PREGNANCY [None]
  - VIRAL UPPER RESPIRATORY TRACT INFECTION [None]
